FAERS Safety Report 4746626-7 (Version None)
Quarter: 2005Q3

REPORT INFORMATION
  Report Type: 
  Country: None (occurrence: None)
  Receive Date: 20050817
  Receipt Date: 20050808
  Transmission Date: 20060218
  Serious: Yes (Other)
  Sender: FDA-Public Use
  Company Number: 2005UW11680

PATIENT
  Age: 80 Year
  Weight: 72.6 kg

DRUGS (6)
  1. SEROQUEL [Suspect]
     Indication: DEPRESSION
     Route: 048
     Dates: start: 20050706, end: 20050706
  2. SEROQUEL [Suspect]
     Dosage: HALF THE TABLET
     Route: 048
     Dates: start: 20050707
  3. TOPROL-XL [Concomitant]
     Route: 048
  4. NORVASC [Concomitant]
  5. HYDROCHLOROTHIAZIDE [Concomitant]
  6. MOZIC [Concomitant]
     Indication: HYPERTENSION

REACTIONS (10)
  - ABDOMINAL PAIN UPPER [None]
  - BACK PAIN [None]
  - CONTUSION [None]
  - COORDINATION ABNORMAL [None]
  - DIZZINESS [None]
  - FALL [None]
  - FLANK PAIN [None]
  - LOSS OF CONSCIOUSNESS [None]
  - MYALGIA [None]
  - PAIN IN EXTREMITY [None]
